FAERS Safety Report 19257773 (Version 3)
Quarter: 2021Q3

REPORT INFORMATION
  Report Type: Spontaneous
  Country: CA (occurrence: CA)
  Receive Date: 20210514
  Receipt Date: 20210706
  Transmission Date: 20211014
  Serious: Yes (Hospitalization)
  Sender: FDA-Public Use
  Company Number: CA-CELLTRION INC.-2020CA020272

PATIENT

DRUGS (6)
  1. INFLECTRA [Suspect]
     Active Substance: INFLIXIMAB-DYYB
     Dosage: 500 MG, AT 0, 2, 6WEEKS, THEN EVERY 8WEEKS (5 MG/KG)
     Route: 042
     Dates: start: 20200923
  2. INFLECTRA [Suspect]
     Active Substance: INFLIXIMAB-DYYB
     Dosage: 10 MG/KG, RE?INDUCTION AT Q 0 , 2, 6 WEEK THEN EVERY 8 WEEKS
     Route: 042
     Dates: start: 20210507
  3. PREDNISONE. [Concomitant]
     Active Substance: PREDNISONE
     Dosage: TAPER
  4. INFLECTRA [Suspect]
     Active Substance: INFLIXIMAB-DYYB
     Indication: CROHN^S DISEASE
     Dosage: 500 MG, AT 0, 2, 6WEEKS, THEN EVERY 8WEEKS (5 MG/KG)
     Route: 042
     Dates: start: 20200227
  5. INFLECTRA [Suspect]
     Active Substance: INFLIXIMAB-DYYB
     Dosage: 500 MG, AT 0, 2, 6WEEKS, THEN EVERY 8WEEKS (5 MG/KG)
     Route: 042
     Dates: start: 20201118
  6. INFLECTRA [Suspect]
     Active Substance: INFLIXIMAB-DYYB
     Dosage: 500 MG, AT 0, 2, 6WEEKS, THEN EVERY 8WEEKS (5 MG/KG)
     Route: 042
     Dates: start: 20210310

REACTIONS (5)
  - Blood pressure fluctuation [Unknown]
  - Blood pressure diastolic increased [Unknown]
  - Condition aggravated [Unknown]
  - Off label use [Unknown]
  - Tachycardia [Unknown]

NARRATIVE: CASE EVENT DATE: 20200227
